FAERS Safety Report 8445596-8 (Version None)
Quarter: 2012Q2

REPORT INFORMATION
  Report Type: 
  Country: None (occurrence: None)
  Receive Date: 20120618
  Receipt Date: 20120613
  Transmission Date: 20120825
  Serious: Yes (Death, Other)
  Sender: FDA-Public Use
  Company Number: PHHY2012JP032831

PATIENT
  Age: 65 Year
  Sex: Male

DRUGS (4)
  1. PREDNISOLONE [Concomitant]
     Dosage: 10 MG/DAY
  2. PREDNISOLONE [Concomitant]
     Dosage: 20 MG, UNK
     Route: 048
  3. OXYGEN [Concomitant]
     Dosage: 2-4 L/MIN
  4. NEORAL [Suspect]
     Indication: POLYARTERITIS NODOSA
     Dosage: 100 MG, DAILY
     Route: 048

REACTIONS (13)
  - HEPATIC CIRRHOSIS [None]
  - HEPATIC FUNCTION ABNORMAL [None]
  - PULMONARY FIBROSIS [None]
  - POLYARTERITIS NODOSA [None]
  - PORTAL HYPERTENSION [None]
  - RENAL IMPAIRMENT [None]
  - NODULAR REGENERATIVE HYPERPLASIA [None]
  - CHRONIC HEPATITIS [None]
  - HEPATIC FAILURE [None]
  - INTERSTITIAL LUNG DISEASE [None]
  - NECROSIS OF ARTERY [None]
  - ARTERIAL STENOSIS [None]
  - ASCITES [None]
